FAERS Safety Report 9771224 (Version 1)
Quarter: 2013Q4

REPORT INFORMATION
  Report Type: Spontaneous
  Country: US (occurrence: US)
  Receive Date: 20131218
  Receipt Date: 20131218
  Transmission Date: 20140711
  Serious: Yes (Other)
  Sender: FDA-Public Use
  Company Number: US-ALLERGAN-1319587US

PATIENT
  Age: 63 Year
  Sex: Female

DRUGS (3)
  1. LUMIGAN [Suspect]
     Indication: GLAUCOMA
     Dosage: UNK
     Route: 047
     Dates: start: 20130829, end: 201312
  2. LISINOPRIL [Concomitant]
  3. XANAX [Concomitant]

REACTIONS (1)
  - Hepatic failure [Unknown]
